FAERS Safety Report 4817242-3 (Version None)
Quarter: 2005Q4

REPORT INFORMATION
  Report Type: 
  Country: None (occurrence: None)
  Receive Date: 20051101
  Receipt Date: 20051019
  Transmission Date: 20060501
  Serious: Yes (Hospitalization, Other)
  Sender: FDA-Public Use
  Company Number: NO-JNJFOC-20051000005

PATIENT
  Sex: Male
  Weight: 57 kg

DRUGS (15)
  1. CONCERTA [Suspect]
     Dosage: OCCASIONALLY 180MG DAY
     Route: 065
  2. CONCERTA [Suspect]
     Dosage: STARTED IN SPRING 2005
     Route: 065
  3. CONCERTA [Suspect]
     Route: 065
  4. TETRACYCLINE [Interacting]
     Route: 065
  5. TETRACYCLINE [Interacting]
     Indication: ACNE
     Route: 065
  6. RITALIN [Concomitant]
     Dosage: EVERY EVENING
     Route: 065
  7. OMEGA 3 [Concomitant]
     Route: 048
  8. MULTI-VITAMINS [Concomitant]
     Route: 048
  9. MULTI-VITAMINS [Concomitant]
     Route: 048
  10. MULTI-VITAMINS [Concomitant]
     Route: 048
  11. MULTI-VITAMINS [Concomitant]
     Route: 048
  12. MULTI-VITAMINS [Concomitant]
     Route: 048
  13. MULTI-VITAMINS [Concomitant]
     Route: 048
  14. MULTI-VITAMINS [Concomitant]
     Route: 048
  15. MULTI-VITAMINS [Concomitant]
     Route: 048

REACTIONS (22)
  - ALANINE AMINOTRANSFERASE INCREASED [None]
  - ASPARTATE AMINOTRANSFERASE INCREASED [None]
  - BLOOD ALKALINE PHOSPHATASE INCREASED [None]
  - BLOOD LACTATE DEHYDROGENASE INCREASED [None]
  - BLOOD MAGNESIUM DECREASED [None]
  - BLOOD POTASSIUM INCREASED [None]
  - CARDIAC ARREST [None]
  - DRUG INTERACTION [None]
  - EJECTION FRACTION DECREASED [None]
  - ELECTROCARDIOGRAM QRS COMPLEX SHORTENED [None]
  - ELECTROCARDIOGRAM QT PROLONGED [None]
  - ELECTROCARDIOGRAM ST SEGMENT ELEVATION [None]
  - FATIGUE [None]
  - HYPERGLYCAEMIA [None]
  - LIPASE INCREASED [None]
  - LOSS OF CONSCIOUSNESS [None]
  - LUNG INJURY [None]
  - PLATELET COUNT INCREASED [None]
  - PNEUMONIA ASPIRATION [None]
  - SKIN INJURY [None]
  - TROPONIN T INCREASED [None]
  - VENTRICULAR FIBRILLATION [None]
